FAERS Safety Report 17602802 (Version 3)
Quarter: 2020Q2

REPORT INFORMATION
  Report Type: Spontaneous
  Country: BR (occurrence: BR)
  Receive Date: 20200331
  Receipt Date: 20200601
  Transmission Date: 20200713
  Serious: Yes (Other)
  Sender: FDA-Public Use
  Company Number: BR-009507513-2003BRA010731

PATIENT
  Sex: Male
  Weight: 70 kg

DRUGS (5)
  1. DIAMICRON [Concomitant]
     Active Substance: GLICLAZIDE
     Indication: RENAL NEOPLASM
  2. DAONIL [Concomitant]
     Active Substance: GLYBURIDE
     Indication: DIABETES MELLITUS
     Dosage: 2 TABLETS 4 HOURS AFTER ADMINISTERING DIAMICRON, AND THEN 2 TABLETS AT NIGHT,
     Route: 048
     Dates: start: 201909
  3. JANUVIA [Suspect]
     Active Substance: SITAGLIPTIN PHOSPHATE
     Dosage: UNK
     Route: 048
  4. DIAMICRON [Concomitant]
     Active Substance: GLICLAZIDE
     Indication: DIABETES MELLITUS
     Dosage: TABLET BY THE MORNING, 4 HOURS AFTER ADMINISTERING JANUVIA
     Route: 048
     Dates: start: 2019
  5. JANUVIA [Suspect]
     Active Substance: SITAGLIPTIN PHOSPHATE
     Indication: DIABETES MELLITUS
     Dosage: 1 TABLET IN THE MORNING, WHILE FASTING
     Route: 048

REACTIONS (3)
  - Hypertension [Unknown]
  - Diabetes mellitus inadequate control [Unknown]
  - Blood glucose increased [Unknown]

NARRATIVE: CASE EVENT DATE: 202003
